FAERS Safety Report 15812332 (Version 1)
Quarter: 2019Q1

REPORT INFORMATION
  Report Type: Spontaneous
  Country: AR (occurrence: AR)
  Receive Date: 20190111
  Receipt Date: 20190111
  Transmission Date: 20190417
  Serious: Yes (Hospitalization, Other)
  Sender: FDA-Public Use
  Company Number: AR-009507513-1901ARG001777

PATIENT
  Age: 72 Year
  Sex: Male

DRUGS (1)
  1. KEYTRUDA [Suspect]
     Active Substance: PEMBROLIZUMAB
     Indication: METASTATIC MALIGNANT MELANOMA
     Dosage: UNK
     Dates: start: 2017

REACTIONS (6)
  - Interstitial lung disease [Unknown]
  - Lung infiltration [Unknown]
  - Pulmonary mass [Unknown]
  - Pneumonia [Recovered/Resolved]
  - Abdominal pain upper [Unknown]
  - Adrenomegaly [Unknown]

NARRATIVE: CASE EVENT DATE: 201811
